FAERS Safety Report 24348187 (Version 1)
Quarter: 2024Q3

REPORT INFORMATION
  Report Type: Spontaneous
  Country: US (occurrence: US)
  Receive Date: 20240923
  Receipt Date: 20240923
  Transmission Date: 20241017
  Serious: Yes (Hospitalization, Other)
  Sender: DR REDDYS
  Company Number: US-DRL-USA-SPO/USA/24/0013749

PATIENT
  Age: 64 Year
  Sex: Male

DRUGS (21)
  1. PANTOPRAZOLE [Suspect]
     Active Substance: PANTOPRAZOLE
     Indication: Gastrooesophageal reflux disease
  2. PANTOPRAZOLE [Suspect]
     Active Substance: PANTOPRAZOLE
  3. OMEPRAZOLE [Suspect]
     Active Substance: OMEPRAZOLE
     Indication: Gastrooesophageal reflux disease
  4. BUPRENORPHINE\NALOXONE [Suspect]
     Active Substance: BUPRENORPHINE\NALOXONE
     Indication: Drug use disorder
     Dosage: BUPRENORPHINE 8 MG/NALOXONE 2 MG SUBLINGUALLY TWICE DAILY
     Route: 060
  5. ALBUTEROL [Suspect]
     Active Substance: ALBUTEROL
     Indication: Hepatitis C
     Route: 030
  6. SILDENAFIL [Suspect]
     Active Substance: SILDENAFIL
     Indication: Erectile dysfunction
     Dosage: AS NEEDED
     Route: 030
  7. CHOLECALCIFEROL [Suspect]
     Active Substance: CHOLECALCIFEROL
     Indication: Vitamin D deficiency
     Route: 030
  8. FERROUS SULFATE [Suspect]
     Active Substance: FERROUS SULFATE
     Indication: Iron deficiency anaemia
     Route: 030
  9. ACYCLOVIR [Suspect]
     Active Substance: ACYCLOVIR
     Indication: Iron deficiency anaemia
  10. BUPROPION [Suspect]
     Active Substance: BUPROPION
     Indication: Tobacco abuse
  11. BUPROPION [Suspect]
     Active Substance: BUPROPION
     Indication: Drug abuse
  12. BUPROPION [Suspect]
     Active Substance: BUPROPION
     Indication: Alcohol use
  13. FUROSEMIDE [Suspect]
     Active Substance: FUROSEMIDE
     Indication: Hepatic cirrhosis
  14. FUROSEMIDE [Suspect]
     Active Substance: FUROSEMIDE
     Indication: Hypertension
  15. POTASSIUM CHLORIDE [Suspect]
     Active Substance: POTASSIUM CHLORIDE
     Indication: Tobacco abuse
  16. POTASSIUM CHLORIDE [Suspect]
     Active Substance: POTASSIUM CHLORIDE
     Indication: Alcohol use
  17. POTASSIUM CHLORIDE [Suspect]
     Active Substance: POTASSIUM CHLORIDE
     Indication: Drug abuse
  18. TESTOSTERONE [Suspect]
     Active Substance: TESTOSTERONE
     Indication: Erectile dysfunction
     Dosage: 200 MG/ML INJECTION EVERY 2?WEEKS
     Route: 030
  19. DOCUSATE [Suspect]
     Active Substance: DOCUSATE
     Indication: Product used for unknown indication
     Route: 030
  20. ALBUTEROL [Suspect]
     Active Substance: ALBUTEROL
     Indication: Hepatitis C
     Route: 030
  21. SOFOSBUVIR\VELPATASVIR [Suspect]
     Active Substance: SOFOSBUVIR\VELPATASVIR
     Indication: Hepatitis C
     Dosage: 200  MG/ML
     Route: 030

REACTIONS (3)
  - Mental status changes [Unknown]
  - Drug interaction [Unknown]
  - Drug ineffective [Unknown]
